FAERS Safety Report 9039507 (Version 1)
Quarter: 2013Q1

REPORT INFORMATION
  Report Type: Spontaneous
  Country: US (occurrence: None)
  Receive Date: 20130123
  Receipt Date: 20130123
  Transmission Date: 20140127
  Serious: No
  Sender: FDA-Public Use
  Company Number: None

PATIENT
  Age: 59 Year
  Sex: Female
  Weight: 86.18 kg

DRUGS (2)
  1. GLUCOPHAGE [Suspect]
     Dosage: 1 PO BID
     Route: 048
     Dates: start: 20120417, end: 20121224
  2. LEVEMIR [Concomitant]

REACTIONS (1)
  - Dizziness [None]
